FAERS Safety Report 19909716 (Version 1)
Quarter: 2021Q4

REPORT INFORMATION
  Report Type: Spontaneous
  Country: CH (occurrence: CH)
  Receive Date: 20211002
  Receipt Date: 20211002
  Transmission Date: 20220304
  Serious: Yes (Hospitalization)
  Sender: FDA-Public Use
  Company Number: None

PATIENT
  Age: 31 Year
  Sex: Female

DRUGS (9)
  1. CLOZAPINE [Suspect]
     Active Substance: CLOZAPINE
     Indication: Panic disorder
     Dosage: 25 MG
     Route: 048
     Dates: start: 20210409, end: 20210414
  2. CLOZAPINE [Suspect]
     Active Substance: CLOZAPINE
     Dosage: 50 MG
     Route: 048
     Dates: start: 20210414, end: 20210416
  3. CLOZAPINE [Suspect]
     Active Substance: CLOZAPINE
     Dosage: 275 MG
     Route: 048
     Dates: start: 20210421, end: 20210425
  4. MOVICOL [Concomitant]
     Active Substance: POLYETHYLENE GLYCOL 3350\POTASSIUM CHLORIDE\SODIUM BICARBONATE\SODIUM CHLORIDE
     Route: 048
     Dates: start: 20210405, end: 20210504
  5. DIAZEPAM [Concomitant]
     Active Substance: DIAZEPAM
     Dosage: 5 MG
     Route: 048
     Dates: start: 20210409, end: 20210430
  6. INVEGA [Concomitant]
     Active Substance: PALIPERIDONE
     Dosage: 6 MG
     Route: 048
     Dates: start: 20210407, end: 20210505
  7. XARELTO [Concomitant]
     Active Substance: RIVAROXABAN
     Dosage: 10 MG
     Route: 048
     Dates: start: 20210406, end: 20210505
  8. DAFALGAN [Concomitant]
     Active Substance: ACETAMINOPHEN
     Dosage: 500 MG
     Route: 048
     Dates: start: 20210424, end: 20210425
  9. RISPERIDONE [Concomitant]
     Active Substance: RISPERIDONE
     Route: 048
     Dates: start: 20210425

REACTIONS (1)
  - Transaminases increased [Recovering/Resolving]

NARRATIVE: CASE EVENT DATE: 20210421
